FAERS Safety Report 6358167-4 (Version None)
Quarter: 2009Q3

REPORT INFORMATION
  Report Type: 
  Country: None (occurrence: None)
  Receive Date: 20090916
  Receipt Date: 20090908
  Transmission Date: 20100115
  Serious: Yes (Other)
  Sender: FDA-Public Use
  Company Number: JP-MERCK-0909USA00089

PATIENT
  Age: 70 Year
  Sex: Female
  Weight: 34 kg

DRUGS (5)
  1. PEPCID RPD [Suspect]
     Route: 048
     Dates: start: 20021010, end: 20090827
  2. PEPCID RPD [Suspect]
     Route: 048
     Dates: start: 20090907
  3. MINODRONIC ACID [Suspect]
     Route: 048
     Dates: start: 20090807, end: 20090827
  4. ONEALFA [Concomitant]
     Route: 048
     Dates: start: 20080501, end: 20090827
  5. BENET [Concomitant]
     Route: 065
     Dates: end: 20090806

REACTIONS (1)
  - DERMATITIS EXFOLIATIVE [None]
